FAERS Safety Report 9360047 (Version 1)
Quarter: 2013Q2

REPORT INFORMATION
  Report Type: Report from Study
  Country: BR (occurrence: BR)
  Receive Date: 20130621
  Receipt Date: 20130621
  Transmission Date: 20140414
  Serious: Yes (Hospitalization, Other)
  Sender: FDA-Public Use
  Company Number: PHHY2013BR052848

PATIENT
  Sex: Male
  Weight: 76 kg

DRUGS (3)
  1. EXELON PATCH [Suspect]
     Indication: DEMENTIA ALZHEIMER^S TYPE
     Dosage: 9.5 MG, QD
     Route: 062
  2. DIOVAN HCT [Concomitant]
     Dosage: 1 DF, DAILY
     Route: 048
  3. GLIFAGE [Concomitant]
     Dosage: UNK UKN, UNK

REACTIONS (6)
  - Memory impairment [Unknown]
  - Headache [Recovering/Resolving]
  - Tremor [Recovering/Resolving]
  - Asthenia [Unknown]
  - Coordination abnormal [Recovering/Resolving]
  - Gait disturbance [Recovering/Resolving]
